FAERS Safety Report 15058071 (Version 2)
Quarter: 2018Q3

REPORT INFORMATION
  Report Type: Spontaneous
  Country: US (occurrence: US)
  Receive Date: 20180625
  Receipt Date: 20180704
  Transmission Date: 20181010
  Serious: Yes (Death, Hospitalization)
  Sender: FDA-Public Use
  Company Number: US-ASTELLAS-2018US027987

PATIENT
  Age: 43 Year
  Sex: Female

DRUGS (2)
  1. AMPHOTERICIN B, LIPOSOME [Suspect]
     Active Substance: AMPHOTERICIN B
     Indication: PNEUMONIA FUNGAL
     Dosage: UNK UNK, UNKNOWN FREQ.
     Route: 042
  2. ISAVUCONAZOLE [Suspect]
     Active Substance: ISAVUCONAZOLE
     Indication: PNEUMONIA FUNGAL
     Dosage: UNK UNK, UNKNOWN FREQ.
     Route: 048

REACTIONS (9)
  - Eschar [Unknown]
  - Drug ineffective [Fatal]
  - Fungal skin infection [Unknown]
  - Muscular weakness [Unknown]
  - Skin necrosis [Unknown]
  - Mucormycosis [Unknown]
  - Anterior spinal artery syndrome [Unknown]
  - Anal incontinence [Unknown]
  - Urinary incontinence [Unknown]
